FAERS Safety Report 14279077 (Version 1)
Quarter: 2017Q4

REPORT INFORMATION
  Report Type: Spontaneous
  Country: BR (occurrence: BR)
  Receive Date: 20171213
  Receipt Date: 20171213
  Transmission Date: 20180321
  Serious: Yes (Hospitalization)
  Sender: FDA-Public Use
  Company Number: BR-ASTRAZENECA-2017SF26208

PATIENT
  Sex: Female

DRUGS (3)
  1. XIGDUO XR [Suspect]
     Active Substance: DAPAGLIFLOZIN PROPANEDIOL\METFORMIN HYDROCHLORIDE
     Indication: GLUCOSE TOLERANCE IMPAIRED
     Dosage: 10/1000 MG, EVERY DAY
     Route: 048
     Dates: start: 201704, end: 201711
  2. FLUOXETINE [Concomitant]
     Active Substance: FLUOXETINE HYDROCHLORIDE
     Indication: OVERWEIGHT
     Route: 048
  3. ORLISTAT. [Concomitant]
     Active Substance: ORLISTAT
     Indication: OVERWEIGHT
     Route: 048

REACTIONS (2)
  - Infectious mononucleosis [Recovered/Resolved]
  - Respiratory tract infection [Recovered/Resolved]

NARRATIVE: CASE EVENT DATE: 2017
